FAERS Safety Report 19263429 (Version 1)
Quarter: 2021Q2

REPORT INFORMATION
  Report Type: Spontaneous
  Country: US (occurrence: US)
  Receive Date: 20210517
  Receipt Date: 20210517
  Transmission Date: 20210717
  Serious: No
  Sender: FDA-Public Use
  Company Number: US-009507513-2105USA000843

PATIENT
  Age: 28 Year
  Sex: Male

DRUGS (3)
  1. ACETYLSALICYLIC ACID [Concomitant]
     Active Substance: ASPIRIN
     Indication: MYOCARDITIS POST INFECTION
     Dosage: LOW DOSE, UNK
  2. PRINIVIL [Suspect]
     Active Substance: LISINOPRIL
     Indication: MYOCARDITIS POST INFECTION
     Dosage: UNK
     Route: 048
  3. METOPROLOL. [Concomitant]
     Active Substance: METOPROLOL
     Indication: MYOCARDITIS POST INFECTION
     Dosage: UNK

REACTIONS (1)
  - Off label use [Unknown]
